FAERS Safety Report 9303963 (Version 2)
Quarter: 2013Q2

REPORT INFORMATION
  Report Type: Spontaneous
  Country: US (occurrence: None)
  Receive Date: 20130520
  Receipt Date: 20130523
  Transmission Date: 20140414
  Serious: Yes (Hospitalization, Other)
  Sender: FDA-Public Use
  Company Number: 2013P1004771

PATIENT
  Age: 60 Year
  Sex: Male
  Weight: 87.09 kg

DRUGS (9)
  1. LANOXIN [Suspect]
     Indication: BUNDLE BRANCH BLOCK RIGHT
     Route: 048
     Dates: start: 1988, end: 1992
  2. LANOXIN [Suspect]
     Indication: ATRIAL FIBRILLATION
     Route: 048
     Dates: start: 1988, end: 1992
  3. DIGOXIN [Suspect]
     Indication: BUNDLE BRANCH BLOCK RIGHT
     Route: 048
     Dates: start: 1992, end: 1992
  4. DIGOXIN [Suspect]
     Indication: ATRIAL FIBRILLATION
     Route: 048
     Dates: start: 1992, end: 1992
  5. NORVASC [Concomitant]
  6. OCCUVITE [Concomitant]
  7. ASPIRIN [Concomitant]
  8. OXYCODONE [Concomitant]
  9. COLACE [Concomitant]

REACTIONS (7)
  - Atrial fibrillation [None]
  - Disease recurrence [None]
  - Fall [None]
  - Cervical vertebral fracture [None]
  - Body height decreased [None]
  - Diabetes mellitus [None]
  - Product substitution issue [None]
